FAERS Safety Report 10519097 (Version 1)
Quarter: 2014Q4

REPORT INFORMATION
  Report Type: Spontaneous
  Country: US (occurrence: None)
  Receive Date: 20141014
  Receipt Date: 20141014
  Transmission Date: 20150528
  Serious: No
  Sender: FDA-Public Use
  Company Number: None

PATIENT

DRUGS (1)
  1. SODIUM CHLORIDE AND POTASSIUM CHLORIDE [Suspect]
     Active Substance: POTASSIUM CHLORIDE\SODIUM CHLORIDE
     Dosage: 0.45 NACL W/20 MEQ KCL

REACTIONS (2)
  - Product label issue [None]
  - Product label confusion [None]

NARRATIVE: CASE EVENT DATE: 20141010
